FAERS Safety Report 5528280-X (Version None)
Quarter: 2007Q4

REPORT INFORMATION
  Report Type: 
  Country: None (occurrence: None)
  Receive Date: 20071128
  Receipt Date: 20071116
  Transmission Date: 20080405
  Serious: Yes (Other)
  Sender: FDA-Public Use
  Company Number: GB-PFIZER INC-2007097252

PATIENT
  Age: 49 Year
  Sex: Female
  Weight: 82.5 kg

DRUGS (1)
  1. CHAMPIX [Suspect]
     Indication: SMOKING CESSATION THERAPY
     Dosage: TEXT:1MG
     Route: 048

REACTIONS (2)
  - HERPES ZOSTER [None]
  - ORAL HERPES [None]
